FAERS Safety Report 22142051 (Version 2)
Quarter: 2023Q4

REPORT INFORMATION
  Report Type: Spontaneous
  Country: GB (occurrence: GB)
  Receive Date: 20230327
  Receipt Date: 20231018
  Transmission Date: 20240110
  Serious: Yes (Death, Other)
  Sender: FDA-Public Use
  Company Number: GB-PFIZER INC-PV202300054320

PATIENT
  Sex: Male

DRUGS (4)
  1. LEUCOVORIN CALCIUM [Suspect]
     Active Substance: LEUCOVORIN CALCIUM
     Dosage: UNK
  2. FLUOROURACIL [Suspect]
     Active Substance: FLUOROURACIL
     Dosage: UNK
  3. IRINOTECAN HYDROCHLORIDE [Suspect]
     Active Substance: IRINOTECAN HYDROCHLORIDE
     Dosage: UNK
  4. CETUXIMAB [Suspect]
     Active Substance: CETUXIMAB
     Dosage: UNK

REACTIONS (9)
  - Hepatic venous pressure gradient abnormal [Fatal]
  - Portal venous gas [Fatal]
  - Pneumatosis intestinalis [Fatal]
  - Colitis ischaemic [Fatal]
  - Neutrophil count decreased [Unknown]
  - Acute kidney injury [Unknown]
  - Sepsis [Unknown]
  - Acidosis [Unknown]
  - Cardiac disorder [Unknown]
